FAERS Safety Report 21860518 (Version 12)
Quarter: 2024Q1

REPORT INFORMATION
  Report Type: Report from Study
  Country: US (occurrence: US)
  Receive Date: 20230113
  Receipt Date: 20240127
  Transmission Date: 20240409
  Serious: No
  Sender: FDA-Public Use
  Company Number: US-002147023-NVSC2023US007968

PATIENT
  Sex: Female

DRUGS (3)
  1. KISQALI [Suspect]
     Active Substance: RIBOCICLIB
     Indication: Product used for unknown indication
     Dosage: UNK
     Route: 048
     Dates: start: 20221222
  2. KISQALI FEMARA CO-PACK [Suspect]
     Active Substance: LETROZOLE\RIBOCICLIB
     Indication: Product used for unknown indication
     Dosage: UNK
     Route: 065
  3. KISQALI FEMARA CO-PACK [Suspect]
     Active Substance: LETROZOLE\RIBOCICLIB
     Indication: Product used for unknown indication
     Dosage: UNK
     Route: 065

REACTIONS (10)
  - Adverse drug reaction [Unknown]
  - Full blood count decreased [Unknown]
  - Weight increased [Unknown]
  - Therapeutic response unexpected [Unknown]
  - Fatigue [Unknown]
  - Haemoglobin decreased [Unknown]
  - Asthenia [Unknown]
  - Disease progression [Unknown]
  - Blood disorder [Unknown]
  - Product dose omission issue [Unknown]
